FAERS Safety Report 16733516 (Version 1)
Quarter: 2019Q3

REPORT INFORMATION
  Report Type: Spontaneous
  Country: US (occurrence: US)
  Receive Date: 20190823
  Receipt Date: 20190823
  Transmission Date: 20191005
  Serious: Yes (Other)
  Sender: FDA-Public Use
  Company Number: US-GW PHARMA-201908USGW2945

PATIENT

DRUGS (2)
  1. EPIDIOLEX [Suspect]
     Active Substance: CANNABIDIOL
     Indication: PRODUCT USED FOR UNKNOWN INDICATION
     Dosage: 6.36 MG/KG, 150 MILLIGRAM, BID
     Route: 048
     Dates: start: 20181213, end: 20190819
  2. EPIDIOLEX [Suspect]
     Active Substance: CANNABIDIOL
     Dosage: DOSE DECREASED
     Route: 048

REACTIONS (2)
  - Diarrhoea [Unknown]
  - Hepatic enzyme increased [Unknown]
